FAERS Safety Report 5799614-6 (Version None)
Quarter: 2008Q3

REPORT INFORMATION
  Report Type: 
  Country: None (occurrence: None)
  Receive Date: 20080703
  Receipt Date: 20080630
  Transmission Date: 20090109
  Serious: Yes (Death, Life-Threatening, Congenital Anomaly, Other)
  Sender: FDA-Public Use
  Company Number: PHEH2006US09849

PATIENT
  Sex: Male

DRUGS (5)
  1. LOTENSIN HCT [Suspect]
     Route: 064
  2. LOTENSIN [Suspect]
     Dosage: UNK
     Route: 064
     Dates: end: 20031121
  3. LOTENSIN [Suspect]
     Dosage: UNK
     Dates: start: 20040723
  4. ALDOMET [Suspect]
     Dosage: UNK, UNK
     Route: 064
  5. HYDROCHLOROTHIAZIDE [Concomitant]

REACTIONS (18)
  - CONGENITAL TRICUSPID VALVE ATRESIA [None]
  - CRYPTORCHISM [None]
  - DRUG EXPOSURE DURING PREGNANCY [None]
  - DYSMORPHISM [None]
  - HEART DISEASE CONGENITAL [None]
  - HYPERBILIRUBINAEMIA [None]
  - MECHANICAL VENTILATION [None]
  - PHOTOTHERAPY [None]
  - PREMATURE BABY [None]
  - PULMONARY HAEMORRHAGE [None]
  - RENAL DYSPLASIA [None]
  - RENAL FAILURE [None]
  - RESPIRATORY DISTRESS [None]
  - SOLITARY KIDNEY [None]
  - TAKAYASU'S ARTERITIS [None]
  - TRANSPOSITION OF THE GREAT VESSELS [None]
  - UNIVENTRICULAR HEART [None]
  - VENTRICULAR SEPTAL DEFECT [None]
